FAERS Safety Report 5360581-0 (Version None)
Quarter: 2007Q2

REPORT INFORMATION
  Report Type: 
  Country: None (occurrence: None)
  Receive Date: 20070530
  Receipt Date: 20070328
  Transmission Date: 20071010
  Serious: No
  Sender: FDA-Public Use
  Company Number: 2007PV032527

PATIENT
  Age: 69 Year
  Sex: Female

DRUGS (3)
  1. BYETTA [Suspect]
     Indication: DIABETES MELLITUS NON-INSULIN-DEPENDENT
     Dosage: 10;5 MCG;SC
     Route: 058
     Dates: start: 20070301, end: 20070320
  2. BYETTA [Suspect]
     Indication: DIABETES MELLITUS NON-INSULIN-DEPENDENT
     Dosage: 10;5 MCG;SC
     Route: 058
     Dates: start: 20070321
  3. THYROID TAB [Concomitant]

REACTIONS (2)
  - HYPERCHLORHYDRIA [None]
  - NAUSEA [None]
